FAERS Safety Report 6801463-4 (Version None)
Quarter: 2010Q2

REPORT INFORMATION
  Report Type: 
  Country: None (occurrence: None)
  Receive Date: 20100629
  Receipt Date: 20100617
  Transmission Date: 20101027
  Serious: Yes (Other)
  Sender: FDA-Public Use
  Company Number: EG-ROCHE-709885

PATIENT
  Sex: Male

DRUGS (2)
  1. PEGASYS [Suspect]
     Indication: HEPATITIS C
     Route: 058
     Dates: start: 20100101
  2. RIBAVIRIN [Suspect]
     Indication: HEPATITIS C
     Dosage: FREQUENCY: DAILY
     Route: 048
     Dates: start: 20100101

REACTIONS (5)
  - ANAL HAEMORRHAGE [None]
  - EPISTAXIS [None]
  - GENERALISED OEDEMA [None]
  - PHARYNGITIS [None]
  - THYROID FUNCTION TEST ABNORMAL [None]
